FAERS Safety Report 7935096-3 (Version None)
Quarter: 2011Q4

REPORT INFORMATION
  Report Type: 
  Country: None (occurrence: None)
  Receive Date: 20111122
  Receipt Date: 20110826
  Transmission Date: 20120403
  Serious: No
  Sender: FDA-Public Use
  Company Number: US-BAYER-2011-085005

PATIENT
  Sex: Female

DRUGS (5)
  1. BENADRYL [Concomitant]
  2. ALEVE (CAPLET) [Suspect]
     Indication: HEADACHE
     Route: 048
  3. EXCEDRIN [ACETYLSALICYLIC ACID,CAFFEINE,SALICYLAMIDE] [Concomitant]
  4. TYLENOL REGULAR [Concomitant]
  5. IBUPROFEN (ADVIL) [Concomitant]

REACTIONS (1)
  - HEADACHE [None]
